FAERS Safety Report 4894466-0 (Version None)
Quarter: 2006Q1

REPORT INFORMATION
  Report Type: 
  Country: None (occurrence: None)
  Receive Date: 20060127
  Receipt Date: 20060116
  Transmission Date: 20060701
  Serious: Yes (Other)
  Sender: FDA-Public Use
  Company Number: NO-NOVOPROD-250058

PATIENT
  Age: 44 Year
  Sex: Female

DRUGS (3)
  1. NOVORAPID FLEXPEN [Suspect]
     Indication: DIABETES MELLITUS INSULIN-DEPENDENT
  2. LEVAXIN [Concomitant]
  3. VITAMIN B-12 [Concomitant]

REACTIONS (4)
  - HEADACHE [None]
  - HYPOGLYCAEMIA [None]
  - MYALGIA [None]
  - SYNCOPE [None]
